FAERS Safety Report 4433839-7 (Version None)
Quarter: 2004Q3

REPORT INFORMATION
  Report Type: 
  Country: None (occurrence: None)
  Receive Date: 20040825
  Receipt Date: 20040811
  Transmission Date: 20050211
  Serious: Yes (Life-Threatening)
  Sender: FDA-Public Use
  Company Number: 2004-BP-06693BP

PATIENT
  Age: 62 Year
  Sex: Male

DRUGS (9)
  1. MICARDIS [Suspect]
     Indication: PROPHYLAXIS
     Dates: start: 20040314
  2. RAMIPRIL [Suspect]
     Indication: PROPHYLAXIS
     Dates: start: 20040314
  3. DICLOFENAC [Suspect]
  4. LIPITOR [Concomitant]
  5. OXAZEPAM [Concomitant]
  6. SELOKEEN ZOC (METOPROLOL SUCCINATE) [Concomitant]
  7. REMERON [Concomitant]
  8. TRAMADOL HCL [Concomitant]
  9. AUGMENTIN '125' [Concomitant]

REACTIONS (1)
  - RENAL FAILURE [None]
